FAERS Safety Report 25479868 (Version 4)
Quarter: 2025Q3

REPORT INFORMATION
  Report Type: Report from Study
  Country: EU (occurrence: EU)
  Receive Date: 20250625
  Receipt Date: 20250717
  Transmission Date: 20251020
  Serious: Yes (Life-Threatening, Hospitalization, Other)
  Sender: EMD SERONO INC
  Company Number: EU-MedicalSyn-Clarion165276

PATIENT
  Age: 48 Year
  Sex: Female
  Weight: 108 kg

DRUGS (9)
  1. CLADRIBINE [Suspect]
     Active Substance: CLADRIBINE
     Indication: Relapsing-remitting multiple sclerosis
     Dates: start: 20211127, end: 20211201
  2. CLADRIBINE [Suspect]
     Active Substance: CLADRIBINE
     Dates: start: 20220114, end: 20220118
  3. CLADRIBINE [Suspect]
     Active Substance: CLADRIBINE
     Dates: start: 20221130, end: 20221204
  4. CLADRIBINE [Suspect]
     Active Substance: CLADRIBINE
     Dates: start: 20230110, end: 20230114
  5. PFIZER-BIONTECH COVID-19 VACCINE [Concomitant]
     Active Substance: TOZINAMERAN
     Indication: COVID-19 immunisation
     Dates: start: 202108, end: 202108
  6. CHOLECALCIFEROL [Concomitant]
     Active Substance: CHOLECALCIFEROL
     Indication: Multiple sclerosis
     Dosage: 20000 IE
  7. CHOLECALCIFEROL [Concomitant]
     Active Substance: CHOLECALCIFEROL
     Dosage: 20000 IE
  8. Comirnaty [Concomitant]
     Indication: Immunisation
  9. VENLAFAXINE HYDROCHLORIDE [Concomitant]
     Active Substance: VENLAFAXINE HYDROCHLORIDE

REACTIONS (3)
  - Herpes simplex [Unknown]
  - Herpes zoster [Recovered/Resolved]
  - Oral herpes [Recovered/Resolved]

NARRATIVE: CASE EVENT DATE: 20250116
